FAERS Safety Report 5265565-9 (Version None)
Quarter: 2007Q1

REPORT INFORMATION
  Report Type: 
  Country: None (occurrence: None)
  Receive Date: 20061213
  Receipt Date: 20040415
  Transmission Date: 20070707
  Serious: Yes (Other)
  Sender: FDA-Public Use
  Company Number: 2004UW07657

PATIENT

DRUGS (1)
  1. IRESSA [Suspect]

REACTIONS (1)
  - ANAEMIA [None]
